FAERS Safety Report 14342775 (Version 1)
Quarter: 2017Q4

REPORT INFORMATION
  Report Type: Spontaneous
  Country: US (occurrence: US)
  Receive Date: 20171229
  Receipt Date: 20171229
  Transmission Date: 20180321
  Serious: No
  Sender: FDA-Public Use
  Company Number: None

PATIENT
  Age: 21 Year
  Sex: Male
  Weight: 74.25 kg

DRUGS (7)
  1. GABAPENTIN. [Concomitant]
     Active Substance: GABAPENTIN
  2. CLARINEX [Concomitant]
     Active Substance: DESLORATADINE
  3. OXYCODONE-ACETAMINOPHEN 5-325 [Suspect]
     Active Substance: ACETAMINOPHEN\OXYCODONE HYDROCHLORIDE
     Indication: SPINAL OPERATION
     Dosage: ?          OTHER FREQUENCY:1-2 /4 HRS;?
     Route: 048
     Dates: start: 20171222, end: 20171226
  4. DORYX [Concomitant]
     Active Substance: DOXYCYCLINE HYCLATE
  5. OXYCODONE-ACETAMINOPHEN 5-325 [Suspect]
     Active Substance: ACETAMINOPHEN\OXYCODONE HYDROCHLORIDE
     Indication: PROCEDURAL PAIN
     Dosage: ?          OTHER FREQUENCY:1-2 /4 HRS;?
     Route: 048
     Dates: start: 20171222, end: 20171226
  6. MUCINEX [Concomitant]
     Active Substance: GUAIFENESIN
  7. MAGNESIUM [Concomitant]
     Active Substance: MAGNESIUM

REACTIONS (3)
  - Drug ineffective [None]
  - Product substitution issue [None]
  - Therapy change [None]

NARRATIVE: CASE EVENT DATE: 20171224
